FAERS Safety Report 13757209 (Version 1)
Quarter: 2017Q3

REPORT INFORMATION
  Report Type: Spontaneous
  Country: US (occurrence: US)
  Receive Date: 20170714
  Receipt Date: 20170714
  Transmission Date: 20171127
  Serious: Yes (Hospitalization)
  Sender: FDA-Public Use
  Company Number: None

PATIENT
  Age: 77 Year
  Sex: Female
  Weight: 65.7 kg

DRUGS (10)
  1. SPIRONOLACTONE. [Concomitant]
     Active Substance: SPIRONOLACTONE
  2. LEVOTHYROXINE. [Concomitant]
     Active Substance: LEVOTHYROXINE
  3. OMEGA 3 FISH OIL [Concomitant]
     Active Substance: FISH OIL\OMEGA-3 FATTY ACIDS
  4. AMLODIPINE [Concomitant]
     Active Substance: AMLODIPINE BESYLATE
  5. GLUCOSAMINE-CHONDROITIN [Concomitant]
     Active Substance: CHONDROITIN SULFATE (BOVINE)\GLUCOSAMINE SULFATE
  6. ALAVERT ALLERGY [Concomitant]
     Active Substance: LORATADINE
  7. METOPROLOL. [Concomitant]
     Active Substance: METOPROLOL
  8. WOMENS-ONE-A-DAY VITAMIN [Concomitant]
  9. ASPIRIN. [Concomitant]
     Active Substance: ASPIRIN
  10. FLUORIDE VARNISH TREATMENT [Suspect]
     Active Substance: SODIUM FLUORIDE
     Indication: DENTAL CARE
     Dates: start: 20170320, end: 20170320

REACTIONS (11)
  - Nausea [None]
  - Haemorrhoids [None]
  - Abdominal discomfort [None]
  - Diverticulum [None]
  - Gastrointestinal haemorrhage [None]
  - Dysgeusia [None]
  - Haematochezia [None]
  - Dyspepsia [None]
  - Diarrhoea [None]
  - Haemoglobin decreased [None]
  - Gastritis [None]

NARRATIVE: CASE EVENT DATE: 20170320
